FAERS Safety Report 24081572 (Version 1)
Quarter: 2024Q3

REPORT INFORMATION
  Report Type: Spontaneous
  Country: US (occurrence: US)
  Receive Date: 20240712
  Receipt Date: 20240712
  Transmission Date: 20241016
  Serious: Yes (Other)
  Sender: BEIGENE
  Company Number: US-BEIGENE-BGN-2024-010586

PATIENT

DRUGS (1)
  1. BRUKINSA [Suspect]
     Active Substance: ZANUBRUTINIB
     Indication: Chronic lymphocytic leukaemia
     Dosage: 160 MILLIGRAM, BID
     Route: 048
     Dates: start: 202305

REACTIONS (6)
  - Pneumonia [Unknown]
  - Respiratory disorder [Unknown]
  - Cough [Unknown]
  - Insomnia [Unknown]
  - Lung disorder [Unknown]
  - White blood cell count decreased [Unknown]
